FAERS Safety Report 4448945-0 (Version None)
Quarter: 2004Q3

REPORT INFORMATION
  Report Type: 
  Country: None (occurrence: None)
  Receive Date: 20040909
  Receipt Date: 20040820
  Transmission Date: 20050211
  Serious: Yes (Hospitalization, Other)
  Sender: FDA-Public Use
  Company Number: USA040876057

PATIENT
  Age: 32 Year
  Sex: Male
  Weight: 83 kg

DRUGS (4)
  1. HUMULIN N [Suspect]
     Indication: DIABETES MELLITUS
     Dates: start: 19840101, end: 20040715
  2. HUMALOG [Suspect]
     Indication: DIABETES MELLITUS
     Dates: start: 20040715
  3. HUMULIN R [Suspect]
     Indication: DIABETES MELLITUS
     Dates: start: 19840101, end: 20040715
  4. LANTUS [Concomitant]

REACTIONS (7)
  - BLOOD GLUCOSE INCREASED [None]
  - DRUG INEFFECTIVE [None]
  - HYPERTENSION [None]
  - MEDICATION ERROR [None]
  - PHARMACEUTICAL PRODUCT COMPLAINT [None]
  - RENAL FAILURE [None]
  - RENAL TRANSPLANT [None]
